FAERS Safety Report 5593126-0 (Version None)
Quarter: 2008Q1

REPORT INFORMATION
  Report Type: 
  Country: None (occurrence: None)
  Receive Date: 20080116
  Receipt Date: 20080106
  Transmission Date: 20080703
  Serious: Yes (Other)
  Sender: FDA-Public Use
  Company Number: US-JNJFOC-20080101267

PATIENT
  Sex: Female
  Weight: 65.77 kg

DRUGS (5)
  1. EXTRA STRENGTH TYLENOL [Suspect]
     Route: 048
  2. EXTRA STRENGTH TYLENOL [Suspect]
     Indication: DRUG USE FOR UNKNOWN INDICATION
     Route: 048
  3. TYLENOL COLD HEAD CONGESTION SEVERE COOL BURST DAYTIME [Suspect]
     Indication: COUGH
     Route: 048
  4. TYLENOL COLD HEAD CONGESTION SEVERE COOL BURST DAYTIME [Suspect]
     Indication: NASOPHARYNGITIS
     Route: 048
  5. VICODIN [Suspect]
     Indication: DRUG USE FOR UNKNOWN INDICATION

REACTIONS (4)
  - DISORIENTATION [None]
  - DIZZINESS [None]
  - DRUG ADMINISTRATION ERROR [None]
  - LOSS OF CONSCIOUSNESS [None]
